FAERS Safety Report 5905085-9 (Version None)
Quarter: 2008Q3

REPORT INFORMATION
  Report Type: 
  Country: None (occurrence: None)
  Receive Date: 20080909
  Receipt Date: 20071126
  Transmission Date: 20090109
  Serious: Yes (Death)
  Sender: FDA-Public Use
  Company Number: 163-20785-07110143

PATIENT
  Age: 53 Year
  Sex: Male

DRUGS (2)
  1. THALOMID [Suspect]
     Indication: MULTIPLE MYELOMA
     Dosage: 100-150 MG, DAILY, ORAL ; 150-200 MG, DAILY, ORAL
     Route: 048
     Dates: start: 20050708, end: 20051101
  2. THALOMID [Suspect]
     Indication: MULTIPLE MYELOMA
     Dosage: 100-150 MG, DAILY, ORAL ; 150-200 MG, DAILY, ORAL
     Route: 048
     Dates: start: 20070716, end: 20070801

REACTIONS (1)
  - MULTIPLE MYELOMA [None]
